FAERS Safety Report 9652344 (Version 2)
Quarter: 2013Q4

REPORT INFORMATION
  Report Type: Spontaneous
  Country: US (occurrence: US)
  Receive Date: 20131029
  Receipt Date: 20131126
  Transmission Date: 20140711
  Serious: No
  Sender: FDA-Public Use
  Company Number: US-BIOGENIDEC-2013BI075627

PATIENT
  Age: 54 Year
  Sex: Female

DRUGS (6)
  1. TECFIDERA [Suspect]
     Indication: MULTIPLE SCLEROSIS
     Route: 048
     Dates: start: 20130626
  2. TECFIDERA [Suspect]
     Indication: MULTIPLE SCLEROSIS
     Route: 048
  3. ADDERALL [Concomitant]
  4. PRENATA [Concomitant]
  5. VIT B COMPLEX C [Concomitant]
  6. PREDNISONE [Concomitant]

REACTIONS (2)
  - Flushing [Not Recovered/Not Resolved]
  - Pharyngeal mass [Not Recovered/Not Resolved]
